FAERS Safety Report 11147158 (Version 4)
Quarter: 2015Q4

REPORT INFORMATION
  Report Type: Spontaneous
  Country: US (occurrence: US)
  Receive Date: 20150528
  Receipt Date: 20151120
  Transmission Date: 20160304
  Serious: Yes (Death, Other)
  Sender: FDA-Public Use
  Company Number: US-GLAXOSMITHKLINE-US2015GSK072474

PATIENT
  Age: 87 Year
  Sex: Male

DRUGS (1)
  1. VOTRIENT [Suspect]
     Active Substance: PAZOPANIB HYDROCHLORIDE
     Indication: RENAL CANCER
     Dosage: 200 MG, U
     Route: 065
     Dates: start: 20140919

REACTIONS (8)
  - Drug ineffective [Unknown]
  - Nonspecific reaction [Unknown]
  - Diarrhoea [Unknown]
  - Fatigue [Unknown]
  - Metastases to stomach [Unknown]
  - Death [Fatal]
  - Gastrointestinal haemorrhage [Unknown]
  - Feeling abnormal [Unknown]

NARRATIVE: CASE EVENT DATE: 20150715
